FAERS Safety Report 4267984-6 (Version None)
Quarter: 2004Q1

REPORT INFORMATION
  Report Type: 
  Country: None (occurrence: None)
  Receive Date: 20040107
  Receipt Date: 20030325
  Transmission Date: 20041129
  Serious: No
  Sender: FDA-Public Use
  Company Number: 2003UW03872

PATIENT
  Age: 23 Year
  Weight: 80 kg

DRUGS (1)
  1. DIPRIVAN [Suspect]
     Dosage: 3 ML/KG/HOUR

REACTIONS (1)
  - RHABDOMYOLYSIS [None]
